FAERS Safety Report 9869815 (Version 2)
Quarter: 2014Q2

REPORT INFORMATION
  Report Type: Spontaneous
  Country: SE (occurrence: None)
  Receive Date: 20140131
  Receipt Date: 20140506
  Transmission Date: 20141212
  Serious: Yes (Life-Threatening)
  Sender: FDA-Public Use
  Company Number: AUR-APL-2014-00686

PATIENT
  Age: 85 Year
  Sex: Female

DRUGS (7)
  1. METFORMIN [Suspect]
     Indication: TYPE 2 DIABETES MELLITUS
     Dosage: 2550 MG (850MG, 3 IN 1 D)
     Dates: start: 2009, end: 20131130
  2. LOSARTAN AND HYDROCHLOROTHIAZIDE [Suspect]
     Indication: HYPERTENSION
     Dosage: 100MG/25MG (1 DOSAGE FORMS)?
  3. LEVAXIN [Concomitant]
  4. SELOKEN ZOC [Concomitant]
  5. AMLODIPINE [Concomitant]
  6. OMEPRAZOLE [Concomitant]
  7. PRONAXEN [Suspect]
     Indication: ARTHRALGIA
     Dosage: 3000 MG (1500 MG,2 IN 1 D)
     Dates: start: 2012, end: 20131130

REACTIONS (8)
  - Renal failure acute [None]
  - Lactic acidosis [None]
  - Rhabdomyolysis [None]
  - Arthralgia [None]
  - Fall [None]
  - Diarrhoea [None]
  - Dehydration [None]
  - Neoplasm malignant [None]
